FAERS Safety Report 9915472 (Version 3)
Quarter: 2014Q4

REPORT INFORMATION
  Report Type: Report from Study
  Country: CA (occurrence: CA)
  Receive Date: 20140221
  Receipt Date: 20141016
  Transmission Date: 20150529
  Serious: Yes (Other)
  Sender: FDA-Public Use
  Company Number: CA-AMGEN-CANSP2014011435

PATIENT
  Age: 50 Year
  Sex: Female

DRUGS (1)
  1. NPLATE [Suspect]
     Active Substance: ROMIPLOSTIM
     Indication: IMMUNE THROMBOCYTOPENIC PURPURA
     Dosage: UNK
     Route: 065
     Dates: start: 20120312

REACTIONS (5)
  - Ligament rupture [Unknown]
  - Groin pain [Unknown]
  - Herpes zoster [Unknown]
  - Neuralgia [Recovering/Resolving]
  - Platelet count increased [Unknown]
